FAERS Safety Report 4773229-0 (Version None)
Quarter: 2005Q3

REPORT INFORMATION
  Report Type: 
  Country: None (occurrence: None)
  Receive Date: 20050919
  Receipt Date: 20050913
  Transmission Date: 20060218
  Serious: Yes (Hospitalization)
  Sender: FDA-Public Use
  Company Number: DE-MERCK-0509DEU00081

PATIENT
  Age: 64 Year
  Sex: Male

DRUGS (1)
  1. VIOXX [Suspect]
     Indication: POLYARTHRITIS
     Route: 048
     Dates: start: 20010101, end: 20040101

REACTIONS (3)
  - CORONARY ARTERY DISEASE [None]
  - DYSPNOEA [None]
  - EXERCISE TOLERANCE DECREASED [None]
